FAERS Safety Report 6141280-4 (Version None)
Quarter: 2009Q2

REPORT INFORMATION
  Report Type: 
  Country: None (occurrence: None)
  Receive Date: 20090402
  Receipt Date: 20090401
  Transmission Date: 20091009
  Serious: No
  Sender: FDA-Public Use
  Company Number: US-B.I. PHARMACEUTICALS,INC./RIDGEFIELD-2009-BP-03162BP

PATIENT
  Sex: Male

DRUGS (12)
  1. SPIRIVA [Suspect]
     Indication: ASTHMA
     Dosage: 18MCG
     Route: 055
  2. SPIRIVA [Suspect]
     Indication: COUGH
  3. DILTIAZEM [Concomitant]
     Indication: CARDIAC DISORDER
     Dosage: 120MG
  4. DIOVAN [Concomitant]
     Indication: CARDIAC DISORDER
     Dosage: 80MG
  5. LIPITOR [Concomitant]
     Indication: CARDIAC DISORDER
     Dosage: 40MG
  6. COUMADIN [Concomitant]
     Indication: CARDIAC DISORDER
     Dosage: 4MG
  7. PULMICORT-100 [Concomitant]
     Indication: ASTHMA
  8. ATROVENT HFA [Concomitant]
     Route: 055
  9. SINGULAIR [Concomitant]
     Indication: ASTHMA
     Dosage: 10MG
  10. ASTELIN [Concomitant]
     Indication: ASTHMA
  11. FLONASE [Concomitant]
     Indication: ASTHMA
  12. KLONOPIN [Concomitant]
     Indication: SLEEP DISORDER THERAPY
     Dosage: .25MG

REACTIONS (4)
  - ASTHMA [None]
  - FATIGUE [None]
  - GAIT DISTURBANCE [None]
  - HEADACHE [None]
